FAERS Safety Report 9956482 (Version 1)
Quarter: 2014Q1

REPORT INFORMATION
  Report Type: Report from Study
  Country: US (occurrence: US)
  Receive Date: 20140304
  Receipt Date: 20140304
  Transmission Date: 20141002
  Serious: No
  Sender: FDA-Public Use
  Company Number: US-ABBVIE-13P-163-1100342-00

PATIENT
  Age: 46 Year
  Sex: Female

DRUGS (6)
  1. HUMIRA [Suspect]
     Indication: PSORIATIC ARTHROPATHY
     Route: 058
     Dates: start: 20130603
  2. TRAMADOL [Concomitant]
     Indication: PAIN
  3. VICODIN [Concomitant]
     Indication: PAIN
  4. SYNTHROID [Concomitant]
     Indication: BLOOD THYROID STIMULATING HORMONE ABNORMAL
  5. OMEPRAZOLE [Concomitant]
     Indication: HYPERCHLORHYDRIA
  6. DIFLUCAN [Concomitant]
     Indication: RASH

REACTIONS (2)
  - Injection site haemorrhage [Not Recovered/Not Resolved]
  - Pain in extremity [Not Recovered/Not Resolved]
